FAERS Safety Report 10044328 (Version 1)
Quarter: 2014Q1

REPORT INFORMATION
  Report Type: Spontaneous
  Country: BR (occurrence: BR)
  Receive Date: 20140328
  Receipt Date: 20140328
  Transmission Date: 20141002
  Serious: Yes (Other)
  Sender: FDA-Public Use
  Company Number: BR-PFIZER INC-2014083218

PATIENT
  Age: 54 Year
  Sex: Male
  Weight: 79 kg

DRUGS (1)
  1. XALATAN [Suspect]
     Indication: INTRAOCULAR PRESSURE TEST ABNORMAL
     Dosage: 3 UG, 1 DROP IN EACH EYE TWICE A DAY
     Route: 047
     Dates: start: 2009

REACTIONS (2)
  - Diabetes mellitus [Unknown]
  - Off label use [Not Recovered/Not Resolved]
